FAERS Safety Report 8859301 (Version 1)
Quarter: 2012Q4

REPORT INFORMATION
  Report Type: 
  Country: US (occurrence: US)
  Receive Date: 20121024
  Receipt Date: 20121024
  Transmission Date: 20130627
  Serious: No
  Sender: FDA-Public Use
  Company Number: US-ASTRAZENECA-2012SE17575

PATIENT
  Age: 92 Year
  Sex: Male

DRUGS (8)
  1. METOPROLOL ER [Suspect]
     Indication: ARRHYTHMIA
     Route: 048
  2. METOPROLOL ER [Suspect]
     Indication: HYPERTENSION
     Route: 048
  3. OMEPRAZOLE [Suspect]
     Route: 048
  4. ISOSORBIDE MONONITRATE ER [Concomitant]
  5. PLAVIX [Concomitant]
  6. AMLODIPINE [Concomitant]
  7. LOVASTATIN [Concomitant]
  8. ALPRAZOLAM [Concomitant]

REACTIONS (3)
  - Blood pressure decreased [Unknown]
  - Heart rate irregular [Unknown]
  - Diarrhoea [Unknown]
